FAERS Safety Report 10871171 (Version 1)
Quarter: 2015Q1

REPORT INFORMATION
  Report Type: Spontaneous
  Country: US (occurrence: None)
  Receive Date: 20150223
  Receipt Date: 20150223
  Transmission Date: 20150721
  Serious: Yes (Death, Hospitalization, Other)
  Sender: FDA-Public Use
  Company Number: 2015-2238

PATIENT
  Age: 35 Month
  Sex: Female

DRUGS (4)
  1. INCRELEX [Suspect]
     Active Substance: MECASERMIN
     Indication: INSULIN RESISTANCE
     Route: 058
  2. INSULIN INFUSIONS/ HIGH-DOSE INSULIN [Concomitant]
  3. METFORMIN [Concomitant]
     Active Substance: METFORMIN HYDROCHLORIDE
  4. INCRELEX [Suspect]
     Active Substance: MECASERMIN
     Indication: PRODUCT USE ISSUE
     Route: 058

REACTIONS (11)
  - Ovarian granulosa cell tumour [None]
  - Acute respiratory distress syndrome [None]
  - Respiratory tract infection [None]
  - Weight increased [None]
  - Adnexal torsion [None]
  - Therapeutic response unexpected [None]
  - Polycystic ovaries [None]
  - Drug ineffective for unapproved indication [None]
  - Ketosis [None]
  - Drug administered in wrong device [None]
  - Abdominal distension [None]
